FAERS Safety Report 5326906-7 (Version None)
Quarter: 2007Q2

REPORT INFORMATION
  Report Type: 
  Country: None (occurrence: None)
  Receive Date: 20070511
  Receipt Date: 20070425
  Transmission Date: 20071010
  Serious: Yes (Other)
  Sender: FDA-Public Use
  Company Number: 6032956

PATIENT
  Age: 48 Year
  Sex: Male

DRUGS (3)
  1. PRAVASTATIN [Suspect]
     Indication: DRUG USE FOR UNKNOWN INDICATION
     Dosage: 20,000 MG (20 MG, 1 IN 1 D)
  2. ATORVASTATIN CALCIUM [Suspect]
     Indication: DRUG USE FOR UNKNOWN INDICATION
     Dosage: 10,000 MG (10 MG, 1 IN 1 D)
  3. INSULIN (INSULIN) [Concomitant]

REACTIONS (1)
  - DIABETES MELLITUS [None]
